FAERS Safety Report 5903787-1 (Version None)
Quarter: 2008Q3

REPORT INFORMATION
  Report Type: 
  Country: None (occurrence: None)
  Receive Date: 20080930
  Receipt Date: 20080926
  Transmission Date: 20090109
  Serious: Yes (Life-Threatening, Hospitalization, Other)
  Sender: FDA-Public Use
  Company Number: GB-ASTRAZENECA-2008GB01814

PATIENT
  Age: 39 Year
  Sex: Male

DRUGS (5)
  1. QUETIAPINE FUMARATE [Suspect]
     Indication: ABNORMAL BEHAVIOUR
     Route: 048
     Dates: start: 20080913, end: 20080913
  2. QUETIAPINE FUMARATE [Suspect]
     Indication: LEARNING DISORDER
     Route: 048
     Dates: start: 20080913, end: 20080913
  3. DIAZEPAM [Concomitant]
     Route: 048
     Dates: end: 20080912
  4. LANSOPRAZOLE [Concomitant]
     Indication: ABDOMINAL DISCOMFORT
     Route: 048
  5. LORATADINE [Concomitant]
     Route: 048

REACTIONS (4)
  - CHEYNE-STOKES RESPIRATION [None]
  - GLASGOW COMA SCALE ABNORMAL [None]
  - MALAISE [None]
  - SOMNOLENCE [None]
